FAERS Safety Report 20080732 (Version 4)
Quarter: 2022Q1

REPORT INFORMATION
  Report Type: Report from Study
  Country: ES (occurrence: ES)
  Receive Date: 20211117
  Receipt Date: 20220207
  Transmission Date: 20220423
  Serious: Yes (Hospitalization)
  Sender: FDA-Public Use
  Company Number: ES-TAKEDA-2021TUS069981

PATIENT
  Age: 49 Year
  Sex: Female

DRUGS (19)
  1. IXAZOMIB [Suspect]
     Active Substance: IXAZOMIB
     Indication: Chronic graft versus host disease
     Dosage: 4 MILLIGRAM
     Route: 048
     Dates: start: 20210729, end: 20210805
  2. IXAZOMIB [Suspect]
     Active Substance: IXAZOMIB
     Dosage: 3 MILLIGRAM
     Route: 048
     Dates: start: 20210826, end: 20211028
  3. IXAZOMIB [Suspect]
     Active Substance: IXAZOMIB
     Dosage: 3 MILLIGRAM
     Route: 048
     Dates: start: 20211118, end: 20211202
  4. ACYCLOVIR [Concomitant]
     Active Substance: ACYCLOVIR
     Indication: Antiviral prophylaxis
     Dosage: 800 MILLIGRAM, BID
     Route: 048
     Dates: start: 20210511
  5. CONTRIMOXAZOLE [Concomitant]
     Indication: Antibiotic prophylaxis
     Dosage: 960 MILLIGRAM, Q3WEEKS
     Route: 048
     Dates: start: 20210511
  6. FOLIC ACID [Concomitant]
     Active Substance: FOLIC ACID
     Indication: Prophylaxis
     Dosage: 5 MILLIGRAM, Q3WEEKS
     Route: 048
     Dates: start: 20210511
  7. TACROLIMUS [Concomitant]
     Active Substance: TACROLIMUS
     Indication: Immunosuppression
     Dosage: 2.5 MILLIGRAM, QD
     Route: 048
     Dates: start: 20211014
  8. SIROLIMUS [Concomitant]
     Active Substance: SIROLIMUS
     Indication: Immunosuppression
     Dosage: 2 MILLIGRAM, QD
     Route: 048
     Dates: start: 20210611
  9. URSODIOL [Concomitant]
     Active Substance: URSODIOL
     Indication: Prophylaxis
     Dosage: 900 MILLIGRAM, QD
     Route: 048
     Dates: start: 20210618
  10. AMLODIPINE BESYLATE [Concomitant]
     Active Substance: AMLODIPINE BESYLATE
     Indication: Prophylaxis
     Dosage: 5 MILLIGRAM, QD
     Route: 048
     Dates: start: 20210511
  11. OMEPRAZOLE [Concomitant]
     Active Substance: OMEPRAZOLE
     Indication: Prophylaxis
     Dosage: 20 MILLIGRAM, QD
     Route: 065
     Dates: start: 20210511
  12. DIAZEPAM [Concomitant]
     Active Substance: DIAZEPAM
     Indication: Insomnia
     Dosage: 5 MILLIGRAM, QD
     Route: 048
     Dates: start: 20210511
  13. ALPRAZOLAM [Concomitant]
     Active Substance: ALPRAZOLAM
     Indication: Insomnia
     Dosage: 0.5 MILLIGRAM, QD
     Route: 048
     Dates: start: 20210826
  14. ALPRAZOLAM [Concomitant]
     Active Substance: ALPRAZOLAM
     Indication: Depression
  15. MELATONIN [Concomitant]
     Active Substance: MELATONIN
     Indication: Insomnia
     Dosage: UNK UNK, QD
     Route: 048
     Dates: start: 20210826
  16. AMITRIPTYLINE HYDROCHLORIDE [Concomitant]
     Active Substance: AMITRIPTYLINE HYDROCHLORIDE
     Indication: Depression
     Dosage: 25 MILLIGRAM, QD
     Route: 048
  17. MAGNESIUM [Concomitant]
     Active Substance: MAGNESIUM
     Indication: Prophylaxis
     Dosage: UNK UNK, Q8HR
     Route: 048
     Dates: start: 20210602
  18. GELISTROL [Concomitant]
     Indication: Prophylaxis
     Dosage: UNK
     Route: 061
     Dates: start: 20210729
  19. Hyaluron [Concomitant]
     Indication: Prophylaxis
     Dosage: UNK UNK, QD
     Route: 061
     Dates: start: 20210729

REACTIONS (1)
  - Pyrexia [Recovered/Resolved]

NARRATIVE: CASE EVENT DATE: 20211103
